FAERS Safety Report 8324066 (Version 2)
Quarter: 2013Q1

REPORT INFORMATION
  Report Type: Spontaneous
  Country: US (occurrence: US)
  Receive Date: 20120105
  Receipt Date: 20130103
  Transmission Date: 20140127
  Serious: No
  Sender: FDA-Public Use
  Company Number: US-ABBOTT-11P-163-0866772-00

PATIENT
  Sex: Female
  Weight: 63.56 kg

DRUGS (2)
  1. SYNTHROID [Suspect]
     Indication: HYPOTHYROIDISM
     Dosage: 100 MICROGRAM FOR THREE DAYS
     Dates: start: 1997
  2. SYNTHROID [Suspect]
     Indication: HYPOTHYROIDISM
     Dosage: 88 MICROGRAMS FOR FOUR DAYS
     Dates: start: 1997

REACTIONS (1)
  - Headache [Recovered/Resolved]
